FAERS Safety Report 17932265 (Version 5)
Quarter: 2025Q2

REPORT INFORMATION
  Report Type: Spontaneous
  Country: CA (occurrence: CA)
  Receive Date: 20200623
  Receipt Date: 20250422
  Transmission Date: 20250716
  Serious: Yes (Hospitalization, Other)
  Sender: NOVARTIS
  Company Number: CA-NOVARTISPH-NVSC2020CA172766

PATIENT
  Age: 27 Year
  Sex: Female

DRUGS (69)
  1. SANDOSTATIN LAR DEPOT [Suspect]
     Active Substance: OCTREOTIDE ACETATE
     Indication: Acromegaly
     Dosage: 30 MG, QMO (1 EVERY 1 MONTH)
     Route: 030
  2. SANDOSTATIN LAR DEPOT [Suspect]
     Active Substance: OCTREOTIDE ACETATE
     Dosage: 20 MG, QMO (1 EVERY 1 MONTH)
     Route: 030
  3. SANDOSTATIN LAR DEPOT [Suspect]
     Active Substance: OCTREOTIDE ACETATE
     Dosage: 30 MG, QMO (1 EVERY 1 MONTH)
     Route: 030
  4. SANDOSTATIN LAR DEPOT [Suspect]
     Active Substance: OCTREOTIDE ACETATE
     Dosage: 20 MG, QMO (1 EVERY 1 MONTH)
     Route: 030
  5. SANDOSTATIN LAR DEPOT [Suspect]
     Active Substance: OCTREOTIDE ACETATE
     Route: 065
  6. SANDOSTATIN LAR DEPOT [Suspect]
     Active Substance: OCTREOTIDE ACETATE
     Dosage: UNK, TID (3 EVERY 1 DAYS)
     Route: 058
  7. SANDOSTATIN LAR DEPOT [Suspect]
     Active Substance: OCTREOTIDE ACETATE
     Dosage: 30 MG, QMO (1 EVERY 1 MONTH)
     Route: 030
  8. SANDOSTATIN LAR DEPOT [Suspect]
     Active Substance: OCTREOTIDE ACETATE
     Dosage: 30 MG, QMO (1 EVERY 1 MONTH)
     Route: 030
  9. SANDOSTATIN LAR DEPOT [Suspect]
     Active Substance: OCTREOTIDE ACETATE
     Dosage: 30 MG, QMO (1 EVERY 1 MONTH)
     Route: 030
  10. SANDOSTATIN LAR DEPOT [Suspect]
     Active Substance: OCTREOTIDE ACETATE
     Dosage: 30 MG, QMO (1 EVERY 1 MONTH)
     Route: 030
  11. SANDOSTATIN LAR DEPOT [Suspect]
     Active Substance: OCTREOTIDE ACETATE
     Route: 058
  12. CABERGOLINE [Suspect]
     Active Substance: CABERGOLINE
     Indication: Acromegaly
     Route: 065
  13. CABERGOLINE [Suspect]
     Active Substance: CABERGOLINE
     Route: 065
  14. CABERGOLINE [Suspect]
     Active Substance: CABERGOLINE
     Route: 065
  15. PASIREOTIDE [Suspect]
     Active Substance: PASIREOTIDE
     Indication: Product used for unknown indication
     Dosage: 40 MG, QMO (1 EVERY 1 MONTHS)
     Route: 030
  16. PASIREOTIDE [Suspect]
     Active Substance: PASIREOTIDE
     Dosage: UNK, QMO (1 EVERY 1 MONTHS)
     Route: 065
  17. PASIREOTIDE [Suspect]
     Active Substance: PASIREOTIDE
     Dosage: 30 MG, QMO (1 EVERY 1 MONTHS)
     Route: 030
  18. PASIREOTIDE [Suspect]
     Active Substance: PASIREOTIDE
     Dosage: 40 MG, QMO (1 EVERY 1 MONTHS)
     Route: 030
  19. PASIREOTIDE [Suspect]
     Active Substance: PASIREOTIDE
     Dosage: 60 MG, QMO (1 EVERY 1 MONTHS)
     Route: 030
  20. PASIREOTIDE [Suspect]
     Active Substance: PASIREOTIDE
     Dosage: 40 MG, QMO (1 EVERY 1 MONTHS)
     Route: 030
  21. PASIREOTIDE [Suspect]
     Active Substance: PASIREOTIDE
     Dosage: 60 MG, QMO (1 EVERY 1 MONTHS)
     Route: 030
  22. PASIREOTIDE [Suspect]
     Active Substance: PASIREOTIDE
     Dosage: 60 MG, QMO (1 EVERY 1 MONTHS)
     Route: 030
  23. PASIREOTIDE [Suspect]
     Active Substance: PASIREOTIDE
     Dosage: 60 MG, QMO (1 EVERY 1 MONTHS)
     Route: 030
  24. PASIREOTIDE PAMOATE [Suspect]
     Active Substance: PASIREOTIDE PAMOATE
     Indication: Acromegaly
     Dosage: 60 MG, QMO (1 EVERY 1 MONTHS)
     Route: 030
  25. PASIREOTIDE PAMOATE [Suspect]
     Active Substance: PASIREOTIDE PAMOATE
     Dosage: 40 MG, QMO (1 EVERY 1 MONTHS)
     Route: 030
  26. PASIREOTIDE PAMOATE [Suspect]
     Active Substance: PASIREOTIDE PAMOATE
     Dosage: 40 MG, QMO (1 EVERY 1 MONTHS)
     Route: 030
  27. PASIREOTIDE PAMOATE [Suspect]
     Active Substance: PASIREOTIDE PAMOATE
     Dosage: 30 MG, QMO (1 EVERY 1 MONTHS)
     Route: 030
  28. PASIREOTIDE PAMOATE [Suspect]
     Active Substance: PASIREOTIDE PAMOATE
     Dosage: 60 MG, QMO (1 EVERY 1 MONTHS)
     Route: 030
  29. PASIREOTIDE PAMOATE [Suspect]
     Active Substance: PASIREOTIDE PAMOATE
     Dosage: 60 MG, QMO (1 EVERY 1 MONTHS)
     Route: 030
  30. PASIREOTIDE PAMOATE [Suspect]
     Active Substance: PASIREOTIDE PAMOATE
     Dosage: 40 MG, QMO (1 EVERY 1 MONTHS)
     Route: 030
  31. DIABETA [Concomitant]
     Active Substance: GLYBURIDE
     Indication: Product used for unknown indication
     Route: 065
  32. DIABETA [Concomitant]
     Active Substance: GLYBURIDE
     Route: 065
  33. DIABETA [Concomitant]
     Active Substance: GLYBURIDE
     Route: 065
  34. DOSTINEX [Concomitant]
     Active Substance: CABERGOLINE
     Indication: Product used for unknown indication
     Route: 048
  35. DOSTINEX [Concomitant]
     Active Substance: CABERGOLINE
     Route: 048
  36. DOSTINEX [Concomitant]
     Active Substance: CABERGOLINE
     Route: 065
  37. INSULIN NOS [Concomitant]
     Active Substance: INSULIN NOS
     Indication: Product used for unknown indication
     Route: 058
  38. INSULIN NOS [Concomitant]
     Active Substance: INSULIN NOS
     Route: 058
  39. INSULIN NOS [Concomitant]
     Active Substance: INSULIN NOS
     Route: 058
  40. INSULIN NOS [Concomitant]
     Active Substance: INSULIN NOS
     Route: 058
  41. INSULIN NOS [Concomitant]
     Active Substance: INSULIN NOS
     Route: 058
  42. INSULIN NOS [Concomitant]
     Active Substance: INSULIN NOS
     Route: 058
  43. INSULIN NOS [Concomitant]
     Active Substance: INSULIN NOS
     Route: 058
  44. JANUVIA [Concomitant]
     Active Substance: SITAGLIPTIN PHOSPHATE
     Indication: Product used for unknown indication
     Route: 065
  45. JANUVIA [Concomitant]
     Active Substance: SITAGLIPTIN PHOSPHATE
     Route: 048
  46. METFORMIN [Concomitant]
     Active Substance: METFORMIN HYDROCHLORIDE
     Indication: Diabetes mellitus
     Route: 048
  47. METFORMIN [Concomitant]
     Active Substance: METFORMIN HYDROCHLORIDE
     Dosage: 1 DOSAGE FORM, BID (2 EVERY 1 DAYS)
     Route: 048
  48. SYNTHROID [Concomitant]
     Active Substance: LEVOTHYROXINE SODIUM
     Indication: Product used for unknown indication
     Route: 065
  49. SYNTHROID [Concomitant]
     Active Substance: LEVOTHYROXINE SODIUM
     Dosage: 1 DOSAGE FORM, QD (1 EVERY 1 DAYS)
     Route: 048
  50. CANAGLIFLOZIN [Concomitant]
     Active Substance: CANAGLIFLOZIN
     Indication: Product used for unknown indication
     Dosage: 1 DOSAGE FORM, QD (1 EVERY 1 DAYS)
     Route: 048
  51. CYCLOBENZAPRINE HYDROCHLORIDE [Concomitant]
     Active Substance: CYCLOBENZAPRINE HYDROCHLORIDE
     Indication: Product used for unknown indication
     Route: 048
  52. DESOGESTREL AND ETHINYL ESTRADIOL [Concomitant]
     Active Substance: DESOGESTREL\ETHINYL ESTRADIOL
     Indication: Product used for unknown indication
     Route: 048
  53. DESOGESTREL AND ETHINYL ESTRADIOL [Concomitant]
     Active Substance: DESOGESTREL\ETHINYL ESTRADIOL
     Route: 048
  54. ERGOCALCIFEROL [Concomitant]
     Active Substance: ERGOCALCIFEROL
     Indication: Product used for unknown indication
     Dosage: UNK, QD (1 EVERY 1 DAYS)
     Route: 048
  55. ERGOCALCIFEROL [Concomitant]
     Active Substance: ERGOCALCIFEROL
     Dosage: UNK, QD (1 EVERY 1 DAYS)
     Route: 048
  56. ERGOCALCIFEROL [Concomitant]
     Active Substance: ERGOCALCIFEROL
     Dosage: UNK, QD (1 EVERY 1 DAYS)
     Route: 048
  57. FLUCONAZOLE [Concomitant]
     Active Substance: FLUCONAZOLE
     Indication: Product used for unknown indication
     Dosage: 1 DOSAGE FORM, QW (1 EVERY 1 WEEKS)
     Route: 065
  58. NOVORAPID [Concomitant]
     Active Substance: INSULIN ASPART
     Indication: Product used for unknown indication
     Route: 058
  59. NOVORAPID [Concomitant]
     Active Substance: INSULIN ASPART
     Route: 058
  60. NOVORAPID [Concomitant]
     Active Substance: INSULIN ASPART
     Route: 058
  61. CYCLOBENZAPRINE [Concomitant]
     Active Substance: CYCLOBENZAPRINE
     Indication: Product used for unknown indication
     Route: 048
  62. GLYBURIDE [Concomitant]
     Active Substance: GLYBURIDE
     Indication: Product used for unknown indication
     Dosage: 1 DOSAGE FORM, BID (2 EVERY 1 DAYS)
     Route: 048
  63. GLYBURIDE [Concomitant]
     Active Substance: GLYBURIDE
     Dosage: 2 DOSAGE FORM, QD (1 EVERY 1 DAYS)
     Route: 048
  64. INSULIN NOS [Concomitant]
     Active Substance: INSULIN NOS
     Indication: Product used for unknown indication
     Route: 058
  65. SEMAGLUTIDE [Concomitant]
     Active Substance: SEMAGLUTIDE
     Indication: Product used for unknown indication
     Dosage: 1 DOSAGE FORM, QW (1 EVERY 1 WEEKS)
     Route: 058
  66. SEMAGLUTIDE [Concomitant]
     Active Substance: SEMAGLUTIDE
     Dosage: 1 DOSAGE FORM, QW (1 EVERY 1 DAYS)
     Route: 058
  67. TRAZODONE [Concomitant]
     Active Substance: TRAZODONE HYDROCHLORIDE
     Indication: Product used for unknown indication
     Route: 065
  68. VENLAFAXINE [Concomitant]
     Active Substance: VENLAFAXINE HYDROCHLORIDE
     Indication: Product used for unknown indication
     Route: 065
  69. VENLAFAXINE HYDROCHLORIDE [Concomitant]
     Active Substance: VENLAFAXINE HYDROCHLORIDE
     Indication: Product used for unknown indication
     Route: 065

REACTIONS (35)
  - Blood pressure diastolic decreased [Unknown]
  - Blood pressure increased [Unknown]
  - Body temperature decreased [Unknown]
  - Cortisol decreased [Unknown]
  - Drug resistance [Unknown]
  - Facial pain [Unknown]
  - Groin abscess [Unknown]
  - Heart rate decreased [Unknown]
  - Heart rate increased [Unknown]
  - Infectious mononucleosis [Unknown]
  - Insulin-like growth factor increased [Unknown]
  - Laryngitis bacterial [Unknown]
  - Nasal congestion [Unknown]
  - Sinusitis [Unknown]
  - Abdominal pain [Unknown]
  - Headache [Unknown]
  - Back pain [Unknown]
  - Blood cholesterol abnormal [Unknown]
  - Blood growth hormone increased [Unknown]
  - Ligament sprain [Unknown]
  - Movement disorder [Unknown]
  - Anxiety [Unknown]
  - Back injury [Unknown]
  - COVID-19 [Unknown]
  - Cough [Unknown]
  - Illness [Unknown]
  - Intervertebral disc protrusion [Unknown]
  - Muscle spasms [Unknown]
  - Nasopharyngitis [Unknown]
  - Oropharyngeal pain [Unknown]
  - Sciatic nerve injury [Unknown]
  - Stress [Unknown]
  - Subcutaneous abscess [Unknown]
  - Off label use [Unknown]
  - Drug ineffective for unapproved indication [Unknown]
